FAERS Safety Report 6452594-2 (Version None)
Quarter: 2009Q4

REPORT INFORMATION
  Report Type: 
  Country: None (occurrence: None)
  Receive Date: 20091124
  Receipt Date: 20091118
  Transmission Date: 20100525
  Serious: Yes (Other)
  Sender: FDA-Public Use
  Company Number: US-BIOGENIDEC-2009BI035182

PATIENT
  Sex: Female
  Weight: 58 kg

DRUGS (4)
  1. TYSABRI [Suspect]
     Indication: MULTIPLE SCLEROSIS
     Route: 042
     Dates: start: 20080408
  2. LAMICTAL [Concomitant]
     Indication: CONVULSION
  3. VENLAFAXINE [Concomitant]
     Indication: DEPRESSION
  4. BLOOD PRESSURE MEDICATION (NOS) [Concomitant]
     Indication: HYPERTENSION

REACTIONS (1)
  - COMPLEX PARTIAL SEIZURES [None]
